FAERS Safety Report 7834238-8 (Version None)
Quarter: 2011Q4

REPORT INFORMATION
  Report Type: 
  Country: None (occurrence: None)
  Receive Date: 20111024
  Receipt Date: 20111019
  Transmission Date: 20120403
  Serious: Yes (Death, Other)
  Sender: FDA-Public Use
  Company Number: PHFR2011GB03414

PATIENT
  Sex: Female
  Weight: 70 kg

DRUGS (7)
  1. VALPROIC ACID [Concomitant]
     Indication: PROPHYLAXIS
     Dosage: 300 MG, BID
     Dates: start: 20091001, end: 20110201
  2. PROCHLORPERAZINE MALEATE [Concomitant]
     Indication: VOMITING
     Dosage: 3 MG, TID
     Route: 048
     Dates: start: 20110527
  3. RANITIDINE [Concomitant]
     Dosage: 150 MG, BID
     Route: 048
     Dates: start: 20091006
  4. CLOZARIL [Suspect]
     Indication: SCHIZOPHRENIA
     Dosage: 100 MG/DAY
     Route: 048
     Dates: start: 20020524
  5. VALPROIC ACID [Concomitant]
     Dosage: 300 MG, BID
     Route: 048
     Dates: start: 20110301
  6. E45 CREAM [Concomitant]
     Route: 061
  7. PILOGEL [Concomitant]
     Route: 061

REACTIONS (4)
  - RENAL DISORDER [None]
  - HYPERTENSION [None]
  - ANTIPSYCHOTIC DRUG LEVEL INCREASED [None]
  - PNEUMONIA [None]
